FAERS Safety Report 9869988 (Version 3)
Quarter: 2014Q4

REPORT INFORMATION
  Report Type: Spontaneous
  Country: US (occurrence: US)
  Receive Date: 20140205
  Receipt Date: 20141030
  Transmission Date: 20150529
  Serious: Yes (Hospitalization, Other)
  Sender: FDA-Public Use
  Company Number: US-009507513-1402USA001315

PATIENT
  Sex: Female
  Weight: 92.2 kg

DRUGS (1)
  1. NUVARING [Suspect]
     Active Substance: ETHINYL ESTRADIOL\ETONOGESTREL
     Indication: PRODUCT USED FOR UNKNOWN INDICATION
     Route: 067

REACTIONS (13)
  - Pneumonia [Unknown]
  - Seizure [Unknown]
  - Drug abuse [Unknown]
  - Laceration [Unknown]
  - Pain in jaw [Unknown]
  - Obesity [Unknown]
  - Sinus disorder [Unknown]
  - Sinusitis [Unknown]
  - Hemiparesis [Unknown]
  - Cerebrovascular accident [Unknown]
  - Accident [Unknown]
  - Neck pain [Unknown]
  - Gastrooesophageal reflux disease [Unknown]

NARRATIVE: CASE EVENT DATE: 2000
